FAERS Safety Report 6250358-6 (Version None)
Quarter: 2009Q2

REPORT INFORMATION
  Report Type: 
  Country: None (occurrence: None)
  Receive Date: 20090625
  Receipt Date: 20090625
  Transmission Date: 20091009
  Serious: Yes (Disabling)
  Sender: FDA-Public Use
  Company Number: None

PATIENT
  Sex: Male
  Weight: 96.4 kg

DRUGS (14)
  1. CRESTOR [Suspect]
     Indication: HYPERLIPIDAEMIA
     Dosage: 20 MG QD 047
     Dates: start: 20060201, end: 20061001
  2. CRESTOR [Suspect]
     Indication: HYPERLIPIDAEMIA
     Dosage: 20 MG QD 047
     Dates: start: 20070601, end: 20080501
  3. CRESTOR [Suspect]
     Indication: HYPERLIPIDAEMIA
     Dosage: 20 MG QD 047
     Dates: start: 20080601, end: 20090101
  4. VYTORIN [Suspect]
     Indication: CORONARY ARTERY DISEASE
     Dosage: 10/40MG QD 047
  5. ARICEPT [Concomitant]
  6. COQ-10 [Concomitant]
  7. ASPIRIN [Concomitant]
  8. COZAAR [Concomitant]
  9. PLAVIX [Concomitant]
  10. MULTI-VITAMIN [Concomitant]
  11. ZETIA [Concomitant]
  12. TOPROL-XL [Concomitant]
  13. OMEGA-3 FATTY ACIDS/FISH OIL [Concomitant]
  14. NITROGQUICK SUBLINGUAL PRN [Concomitant]

REACTIONS (25)
  - ACTIVITIES OF DAILY LIVING IMPAIRED [None]
  - AMYOTROPHIC LATERAL SCLEROSIS [None]
  - APATHY [None]
  - APHASIA [None]
  - BLOOD CREATINE PHOSPHOKINASE INCREASED [None]
  - BURNING SENSATION [None]
  - CEREBRAL VENTRICLE DILATATION [None]
  - DYSPNOEA EXERTIONAL [None]
  - FALL [None]
  - FATIGUE [None]
  - FRONTOTEMPORAL DEMENTIA [None]
  - GAIT DISTURBANCE [None]
  - HYPOREFLEXIA [None]
  - INTERMITTENT CLAUDICATION [None]
  - LIMB DISCOMFORT [None]
  - MEMORY IMPAIRMENT [None]
  - MENTAL IMPAIRMENT [None]
  - MINI MENTAL STATUS EXAMINATION ABNORMAL [None]
  - MOTOR NEURONE DISEASE [None]
  - MOVEMENT DISORDER [None]
  - MUSCLE DISORDER [None]
  - PAIN IN EXTREMITY [None]
  - PERFORMANCE STATUS DECREASED [None]
  - REFLEXES ABNORMAL [None]
  - SPEECH DISORDER [None]
